FAERS Safety Report 7333403-6 (Version None)
Quarter: 2011Q1

REPORT INFORMATION
  Report Type: 
  Country: None (occurrence: None)
  Receive Date: 20110304
  Receipt Date: 20110302
  Transmission Date: 20110831
  Serious: Yes (Other)
  Sender: FDA-Public Use
  Company Number: GB-ABBOTT-08P-167-0449311-00

PATIENT
  Sex: Female

DRUGS (5)
  1. EPILIM [Suspect]
  2. FOLIC ACID [Concomitant]
     Indication: VITAMIN SUPPLEMENTATION
     Dates: start: 19970707
  3. EPILIM [Suspect]
     Dosage: 400 MG DAILY
     Dates: start: 19860501
  4. EPILIM [Suspect]
     Dosage: 800 MG DAILY
     Dates: start: 19971201
  5. EPILIM [Suspect]
     Indication: EPILEPSY
     Dosage: 1400MG DAILY, 600MG IN AM AND 800MG AT NIGHT
     Dates: start: 19970707

REACTIONS (3)
  - LOSS OF CONSCIOUSNESS [None]
  - CONVULSION [None]
  - ROAD TRAFFIC ACCIDENT [None]
